FAERS Safety Report 24614670 (Version 4)
Quarter: 2025Q4

REPORT INFORMATION
  Report Type: Spontaneous
  Country: PR (occurrence: PR)
  Receive Date: 20241113
  Receipt Date: 20251111
  Transmission Date: 20260117
  Serious: No
  Sender: PFIZER
  Company Number: PR-PFIZER INC-202300369280

PATIENT
  Age: 64 Year
  Sex: Female

DRUGS (7)
  1. LITFULO [Suspect]
     Active Substance: RITLECITINIB TOSYLATE
     Indication: Alopecia
     Dosage: 50 MG, 1X/DAY
     Route: 048
     Dates: start: 202308
  2. LITFULO [Suspect]
     Active Substance: RITLECITINIB TOSYLATE
     Dosage: 50 MG
  3. OMEGA-3 FATTY ACIDS [Concomitant]
     Active Substance: OMEGA-3 FATTY ACIDS
     Dosage: UNK
  4. VITAMIN D3 [Concomitant]
     Active Substance: CHOLECALCIFEROL
     Dosage: UNK
  5. MENAQUINONE 6 [Concomitant]
     Active Substance: MENAQUINONE 6
     Dosage: UNK
  6. HERBALS\TARAXACUM OFFICINALE [Concomitant]
     Active Substance: HERBALS\TARAXACUM OFFICINALE
     Indication: Blood cholesterol abnormal
     Dosage: UNK
  7. MATRICARIA RECUTITA [Concomitant]
     Active Substance: MATRICARIA RECUTITA
     Indication: Sleep disorder
     Dosage: UNK

REACTIONS (2)
  - Nasopharyngitis [Unknown]
  - Vitamin B12 decreased [Unknown]
